FAERS Safety Report 26091118 (Version 1)
Quarter: 2025Q4

REPORT INFORMATION
  Report Type: Spontaneous
  Country: EU (occurrence: EU)
  Receive Date: 20251126
  Receipt Date: 20251126
  Transmission Date: 20260117
  Serious: Yes (Other)
  Sender: RANBAXY
  Company Number: EU-SUN PHARMACEUTICAL INDUSTRIES LTD-2025RR-537151

PATIENT
  Age: 77 Year
  Sex: Female

DRUGS (4)
  1. GEMCITABINE [Suspect]
     Active Substance: GEMCITABINE
     Indication: Gallbladder cancer metastatic
     Dosage: UNK
     Route: 065
  2. CISPLATIN [Suspect]
     Active Substance: CISPLATIN
     Indication: Gallbladder cancer metastatic
     Dosage: UNK
     Route: 065
  3. CAPECITABINE [Suspect]
     Active Substance: CAPECITABINE
     Indication: Gallbladder adenocarcinoma
     Dosage: 4 CYCLES
     Route: 065
  4. DURVALUMAB [Suspect]
     Active Substance: DURVALUMAB
     Indication: Gallbladder cancer metastatic
     Dosage: UNK
     Route: 065

REACTIONS (8)
  - Gastrointestinal toxicity [Unknown]
  - Rash [Recovered/Resolved]
  - Arteriospasm coronary [Unknown]
  - Toxicity to various agents [Unknown]
  - Microangiopathy [Unknown]
  - Thrombotic microangiopathy [Unknown]
  - Fatigue [Unknown]
  - Anaemia [Unknown]
